FAERS Safety Report 5450307-4 (Version None)
Quarter: 2007Q3

REPORT INFORMATION
  Report Type: 
  Country: None (occurrence: None)
  Receive Date: 20070912
  Receipt Date: 20070906
  Transmission Date: 20080115
  Serious: Yes (Hospitalization)
  Sender: FDA-Public Use
  Company Number: US-ASTRAZENECA-2007UW21157

PATIENT
  Age: 42 Year
  Sex: Female

DRUGS (1)
  1. FASLODEX [Suspect]
     Route: 030
     Dates: start: 20061109

REACTIONS (5)
  - CHOKING [None]
  - HYPERSENSITIVITY [None]
  - INJECTION SITE PAIN [None]
  - LUNG DISORDER [None]
  - SWELLING [None]
